FAERS Safety Report 22139149 (Version 2)
Quarter: 2023Q2

REPORT INFORMATION
  Report Type: Spontaneous
  Country: US (occurrence: US)
  Receive Date: 20230327
  Receipt Date: 20230619
  Transmission Date: 20230721
  Serious: No
  Sender: FDA-Public Use
  Company Number: US-SA-SAC20230321001059

PATIENT
  Sex: Female

DRUGS (1)
  1. DUPIXENT [Suspect]
     Active Substance: DUPILUMAB
     Dosage: 300 MG, OTHER
     Route: 058

REACTIONS (6)
  - Injection site pain [Unknown]
  - Injection site exfoliation [Unknown]
  - Varicose vein [Unknown]
  - Skin ulcer [Recovered/Resolved]
  - Skin exfoliation [Recovered/Resolved]
  - Injection site erythema [Unknown]
